FAERS Safety Report 8348088-X (Version None)
Quarter: 2012Q2

REPORT INFORMATION
  Report Type: 
  Country: None (occurrence: None)
  Receive Date: 20120509
  Receipt Date: 20100707
  Transmission Date: 20120825
  Serious: No
  Sender: FDA-Public Use
  Company Number: US-TEVA-2010003659

PATIENT
  Sex: Female
  Weight: 72.64 kg

DRUGS (8)
  1. CYCLOBENZAPRINE [Concomitant]
     Indication: INSOMNIA
  2. CELEXA [Concomitant]
     Indication: DEPRESSION
  3. TRAZODONE HCL [Concomitant]
     Indication: SLEEP DISORDER
  4. NUVIGIL [Suspect]
     Dosage: 150 MILLIGRAM;
     Route: 048
  5. AMBIEN CR [Concomitant]
     Indication: INSOMNIA
  6. KLONOPIN [Concomitant]
     Indication: INSOMNIA
  7. NUVIGIL [Suspect]
     Indication: FATIGUE
     Dosage: 75 MILLIGRAM;
     Route: 048
     Dates: start: 20100101
  8. BUSPAR [Concomitant]

REACTIONS (7)
  - ANXIETY [None]
  - VOMITING [None]
  - DRUG TOLERANCE [None]
  - DEPRESSION [None]
  - NAUSEA [None]
  - FATIGUE [None]
  - INTENTIONAL DRUG MISUSE [None]
